FAERS Safety Report 8779386 (Version 2)
Quarter: 2012Q4

REPORT INFORMATION
  Report Type: 
  Country: US (occurrence: US)
  Receive Date: 20120911
  Receipt Date: 20121022
  Transmission Date: 20130627
  Serious: Yes (Death)
  Sender: FDA-Public Use
  Company Number: US-ELI_LILLY_AND_COMPANY-US201208004273

PATIENT
  Age: 34 Year
  Weight: 77 kg

DRUGS (4)
  1. ALIMTA [Suspect]
     Indication: LUNG CARCINOMA CELL TYPE UNSPECIFIED STAGE IV
     Dosage: 500 mg/m2, other
     Route: 042
     Dates: start: 20120412
  2. VITAMIN B12 [Concomitant]
     Dosage: 1000 ug, UNK
     Dates: start: 20120412, end: 20120423
  3. FOLIC ACID [Concomitant]
     Dosage: 1 mg, daily
     Dates: start: 20120412, end: 20120423
  4. CORTICOSTEROID NOS [Concomitant]
     Dosage: 4 mg, UNK
     Route: 048
     Dates: start: 20120411, end: 20120423

REACTIONS (3)
  - Pulmonary embolism [Fatal]
  - Cardio-respiratory arrest [Fatal]
  - Neoplasm progression [Fatal]
